FAERS Safety Report 16696277 (Version 1)
Quarter: 2019Q3

REPORT INFORMATION
  Report Type: Report from Study
  Country: None (occurrence: DE)
  Receive Date: 20190813
  Receipt Date: 20190813
  Transmission Date: 20191004
  Serious: Yes (Other)
  Sender: FDA-Public Use
  Company Number: DE-SHILPA MEDICARE LIMITED-SML-DE-2019-00168

PATIENT
  Sex: Female

DRUGS (8)
  1. IMATINIB, UNKNOWN [Suspect]
     Active Substance: IMATINIB
     Indication: CHRONIC MYELOID LEUKAEMIA
     Dosage: 400 MILLIGRAM, QD
     Route: 065
     Dates: start: 20190314, end: 20190321
  2. IMATINIB, UNKNOWN [Suspect]
     Active Substance: IMATINIB
     Dosage: 400 MILLIGRAM
     Route: 065
     Dates: start: 20190214, end: 20190304
  3. DASATINIB. [Suspect]
     Active Substance: DASATINIB
     Indication: CHRONIC MYELOID LEUKAEMIA
     Dosage: 100 MILLIGRAM, QD
     Route: 065
     Dates: start: 20180704, end: 20180719
  4. DASATINIB. [Suspect]
     Active Substance: DASATINIB
     Dosage: 100 MILLIGRAM, QD
     Route: 065
     Dates: start: 20180726, end: 20181106
  5. IMATINIB, UNKNOWN [Suspect]
     Active Substance: IMATINIB
     Dosage: 400 MILLIGRAM, QD
     Route: 065
     Dates: start: 20181115, end: 20190102
  6. IMATINIB, UNKNOWN [Suspect]
     Active Substance: IMATINIB
     Dosage: 400 MILLIGRAM, QD
     Route: 065
     Dates: start: 20181115, end: 20190102
  7. IMATINIB, UNKNOWN [Suspect]
     Active Substance: IMATINIB
     Dosage: 400 MILLIGRAM
     Route: 065
     Dates: start: 20190214, end: 20190304
  8. IMATINIB, UNKNOWN [Suspect]
     Active Substance: IMATINIB
     Indication: CHRONIC MYELOID LEUKAEMIA
     Dosage: 400 MILLIGRAM, QD
     Route: 065
     Dates: start: 20190314, end: 20190321

REACTIONS (6)
  - Rash [Recovered/Resolved]
  - Nausea [Recovered/Resolved]
  - Atrial fibrillation [Recovered/Resolved]
  - Liver function test increased [Recovered/Resolved]
  - Leukopenia [Recovered/Resolved]
  - Off label use [Unknown]

NARRATIVE: CASE EVENT DATE: 20180717
